FAERS Safety Report 6242785-8 (Version None)
Quarter: 2009Q2

REPORT INFORMATION
  Report Type: 
  Country: None (occurrence: None)
  Receive Date: 20090624
  Receipt Date: 20090616
  Transmission Date: 20091009
  Serious: Yes (Hospitalization)
  Sender: FDA-Public Use
  Company Number: FR-PFIZER INC-2008084787

PATIENT
  Age: 68 Year

DRUGS (6)
  1. ALDACTONE [Suspect]
     Dosage: EVERY DAY
     Route: 048
     Dates: start: 20060406
  2. TAHOR [Suspect]
     Dosage: EVERY DAY
     Route: 048
     Dates: start: 20040406
  3. ATENOLOL [Suspect]
     Dosage: 2 DOSAGE FORM
     Route: 048
     Dates: start: 20050525
  4. FLECAINIDE ACETATE [Suspect]
     Route: 048
     Dates: start: 20060406
  5. ACETYLSALICYLIC ACID [Concomitant]
  6. DRUG, UNSPECIFIED [Concomitant]

REACTIONS (2)
  - ANTINUCLEAR ANTIBODY [None]
  - CYTOLYTIC HEPATITIS [None]
